FAERS Safety Report 19085435 (Version 4)
Quarter: 2021Q2

REPORT INFORMATION
  Report Type: Report from Study
  Country: FR (occurrence: FR)
  Receive Date: 20210401
  Receipt Date: 20210607
  Transmission Date: 20210717
  Serious: Yes (Other)
  Sender: FDA-Public Use
  Company Number: FR-ROCHE-2796599

PATIENT
  Age: 44 Year
  Sex: Female

DRUGS (3)
  1. SEDATIF PC [Concomitant]
     Active Substance: HOMEOPATHICS
     Dates: start: 20210306
  2. ATEZOLIZUMAB. [Suspect]
     Active Substance: ATEZOLIZUMAB
     Indication: CERVIX CARCINOMA
     Route: 042
  3. XANAX [Concomitant]
     Active Substance: ALPRAZOLAM
     Dosage: LAST DOSE TAKEN ON 05?MAR?2021
     Route: 048

REACTIONS (2)
  - Hyperthyroidism [Recovered/Resolved with Sequelae]
  - Hypothyroidism [Recovered/Resolved]

NARRATIVE: CASE EVENT DATE: 20210105
